FAERS Safety Report 9631742 (Version 2)
Quarter: 2013Q4

REPORT INFORMATION
  Report Type: Report from Study
  Country: IT (occurrence: IT)
  Receive Date: 20131018
  Receipt Date: 20131031
  Transmission Date: 20140711
  Serious: Yes (Death)
  Sender: FDA-Public Use
  Company Number: IT-PFIZER INC-2013294632

PATIENT
  Age: 79 Year
  Sex: Female
  Weight: 76 kg

DRUGS (11)
  1. CRIZOTINIB [Suspect]
     Indication: NON-SMALL CELL LUNG CANCER
     Dosage: 200 MG, CONTINUOUS TWICE DAILY
     Route: 048
     Dates: start: 20120809, end: 20131005
  2. CARBOPLATIN [Suspect]
     Indication: NON-SMALL CELL LUNG CANCER
     Dosage: 510 MG DAY 1 OF 21 DAY CYCLE
     Route: 042
     Dates: start: 20111025, end: 20120113
  3. PEMETREXED [Suspect]
     Indication: NON-SMALL CELL LUNG CANCER
     Dosage: 900 MG DAY 1 OF 21 DAY CYCLE
     Route: 042
     Dates: start: 20111025, end: 20120113
  4. CONTROL [Concomitant]
     Indication: DEPRESSION
     Dosage: 1 MG, DAILY
     Route: 048
     Dates: start: 2013, end: 20131007
  5. CALCIUM ^SANDOZ^ [Concomitant]
     Indication: HYPOCALCAEMIA
     Dosage: 1 DF (UNIT UNKNOWN), DAILY
     Route: 048
     Dates: start: 2013, end: 20131007
  6. OMEPRAZOLE [Concomitant]
     Indication: PROPHYLAXIS AGAINST GASTROINTESTINAL ULCER
     Dosage: 40 MG, DAILY
     Route: 048
     Dates: start: 2013, end: 20131007
  7. CITALOPRAM [Concomitant]
     Indication: DEPRESSION
     Dosage: 20 MG, 2X/DAY
     Route: 048
     Dates: start: 2013, end: 20131007
  8. TACHIDOL [Concomitant]
     Indication: PAIN
     Dosage: 2X/DAY
     Route: 048
     Dates: start: 2013, end: 20131007
  9. GAVISCON [Concomitant]
     Indication: PROPHYLAXIS AGAINST GASTROINTESTINAL ULCER
     Dosage: 2X/DAY
     Route: 048
     Dates: start: 2013, end: 20131007
  10. MODURETIC [Concomitant]
     Indication: HYPERTENSION
     Dosage: 1X/DAY
     Route: 048
     Dates: start: 2013, end: 20131007
  11. SOLDESAM [Concomitant]
     Indication: PAIN
     Dosage: 8 MG, DAILY
     Route: 030
     Dates: start: 2013, end: 20131007

REACTIONS (1)
  - Respiratory failure [Fatal]
